FAERS Safety Report 15561460 (Version 1)
Quarter: 2018Q4

REPORT INFORMATION
  Report Type: Spontaneous
  Country: US (occurrence: US)
  Receive Date: 20181028
  Receipt Date: 20181028
  Transmission Date: 20190205
  Serious: No
  Sender: FDA-Public Use
  Company Number: None

PATIENT
  Age: 27 Year
  Sex: Female
  Weight: 77.85 kg

DRUGS (2)
  1. UP AND UP TIOCONAZOLE 1 [Suspect]
     Active Substance: TIOCONAZOLE
     Indication: VULVOVAGINAL MYCOTIC INFECTION
     Dosage: ?          QUANTITY:1 INJECTION(S);?
     Route: 067
     Dates: start: 20181028, end: 20181028
  2. IUD NOS [Concomitant]
     Active Substance: COPPER OR LEVONORGESTREL

REACTIONS (5)
  - Vaginal haemorrhage [None]
  - Vulvovaginal burning sensation [None]
  - Application site pain [None]
  - Vulvovaginal pain [None]
  - Application site haemorrhage [None]

NARRATIVE: CASE EVENT DATE: 20181028
